FAERS Safety Report 8599810-9 (Version None)
Quarter: 2012Q3

REPORT INFORMATION
  Report Type: 
  Country: None (occurrence: None)
  Receive Date: 20120816
  Receipt Date: 20120809
  Transmission Date: 20120928
  Serious: Yes (Other)
  Sender: FDA-Public Use
  Company Number: US-ELI_LILLY_AND_COMPANY-US201208004075

PATIENT
  Sex: Male

DRUGS (2)
  1. CIALIS [Suspect]
     Indication: ERECTILE DYSFUNCTION
     Dosage: 2.5 MG, UNK
     Dates: start: 20100601
  2. CIALIS [Suspect]
     Dosage: 5 MG, UNK

REACTIONS (2)
  - VASCULAR GRAFT [None]
  - DRUG INEFFECTIVE [None]
